FAERS Safety Report 12933156 (Version 1)
Quarter: 2016Q4

REPORT INFORMATION
  Report Type: Spontaneous
  Country: US (occurrence: US)
  Receive Date: 20161111
  Receipt Date: 20161111
  Transmission Date: 20170207
  Serious: No
  Sender: FDA-Public Use
  Company Number: US-009507513-1610USA008969

PATIENT
  Age: 32 Year
  Sex: Female
  Weight: 52.15 kg

DRUGS (2)
  1. FLAGYL (METRONIDAZOLE BENZOATE) [Concomitant]
     Active Substance: METRONIDAZOLE\METRONIDAZOLE HYDROCHLORIDE
  2. NUVARING [Suspect]
     Active Substance: ETHINYL ESTRADIOL\ETONOGESTREL
     Indication: CONTRACEPTION
     Dosage: 3 WKS IN 1 WK OUT
     Route: 067

REACTIONS (2)
  - Product use issue [Unknown]
  - Vaginal haemorrhage [Unknown]

NARRATIVE: CASE EVENT DATE: 201610
